FAERS Safety Report 7396042-7 (Version None)
Quarter: 2011Q2

REPORT INFORMATION
  Report Type: 
  Country: None (occurrence: None)
  Receive Date: 20110406
  Receipt Date: 20110323
  Transmission Date: 20111010
  Serious: Yes (Hospitalization)
  Sender: FDA-Public Use
  Company Number: US-JNJFOC-20110311365

PATIENT
  Sex: Female
  Weight: 59.5 kg

DRUGS (19)
  1. DERMA-SMOOTHE/FS [Concomitant]
  2. SINGULAIR [Concomitant]
  3. MULTI-VITAMINS [Concomitant]
  4. FISH OIL [Concomitant]
  5. VITAMIN D [Concomitant]
  6. CREON [Concomitant]
  7. FOLIC ACID [Concomitant]
  8. LACTASE [Concomitant]
  9. NU IRON [Concomitant]
  10. PRILOSEC [Concomitant]
  11. METHOTREXATE [Concomitant]
  12. AMMONIUM LACTATE [Concomitant]
  13. LUXIQ [Concomitant]
  14. ALBUTEROL [Concomitant]
  15. EMLA/TEGADERM [Concomitant]
  16. FLAGYL [Concomitant]
  17. FLORASTOR [Concomitant]
  18. ELAVIL [Concomitant]
  19. REMICADE [Suspect]
     Indication: CROHN'S DISEASE
     Route: 042

REACTIONS (1)
  - CROHN'S DISEASE [None]
